FAERS Safety Report 21784422 (Version 3)
Quarter: 2023Q1

REPORT INFORMATION
  Report Type: Report from Study
  Country: US (occurrence: US)
  Receive Date: 20221227
  Receipt Date: 20230106
  Transmission Date: 20230418
  Serious: No
  Sender: FDA-Public Use
  Company Number: US-ABBVIE-4213438

PATIENT
  Age: 65 Year
  Sex: Female

DRUGS (1)
  1. HUMIRA [Suspect]
     Active Substance: ADALIMUMAB
     Indication: Rheumatoid arthritis
     Dosage: CITRATE FREE, FORM STRENGTH 40 MILLIGRAM
     Route: 058
     Dates: start: 20221025

REACTIONS (6)
  - Injection site pruritus [Recovering/Resolving]
  - Rheumatoid arthritis [Recovering/Resolving]
  - Injection site haemorrhage [Recovered/Resolved]
  - Injection site pain [Recovering/Resolving]
  - Injection site discomfort [Recovering/Resolving]
  - Injection site haemorrhage [Recovering/Resolving]

NARRATIVE: CASE EVENT DATE: 20230103
